FAERS Safety Report 4637787-9 (Version None)
Quarter: 2005Q2

REPORT INFORMATION
  Report Type: 
  Country: None (occurrence: None)
  Receive Date: 20050325
  Receipt Date: 20041130
  Transmission Date: 20051028
  Serious: No
  Sender: FDA-Public Use
  Company Number: USA041184879

PATIENT
  Age: 78 Year
  Sex: Female

DRUGS (9)
  1. FORTEO [Suspect]
     Indication: OSTEOPOROSIS
     Dates: start: 20040101
  2. CALCIUM GLUCONATE [Concomitant]
  3. VITAMINS NOS [Concomitant]
  4. ZOLOFT [Concomitant]
  5. ACIPHEX [Concomitant]
  6. LORAZEPAM [Concomitant]
  7. ALBUTEROL [Concomitant]
  8. AMITRIPTYLINE [Concomitant]
  9. FOSAMAX [Concomitant]

REACTIONS (2)
  - BLOOD MAGNESIUM DECREASED [None]
  - HYPERCALCAEMIA [None]
